FAERS Safety Report 5482179-6 (Version None)
Quarter: 2007Q4

REPORT INFORMATION
  Report Type: 
  Country: None (occurrence: None)
  Receive Date: 20071011
  Receipt Date: 20071002
  Transmission Date: 20080405
  Serious: Yes (Other)
  Sender: FDA-Public Use
  Company Number: CA-JNJFOC-20070400463

PATIENT
  Sex: Female
  Weight: 63.5 kg

DRUGS (8)
  1. REMICADE [Suspect]
     Route: 042
  2. REMICADE [Suspect]
     Route: 042
  3. REMICADE [Suspect]
     Route: 042
  4. REMICADE [Suspect]
     Indication: ANKYLOSING SPONDYLITIS
     Route: 042
  5. ELTROXIN [Concomitant]
     Route: 048
  6. ELAVIL [Concomitant]
  7. FENTANYL [Concomitant]
     Dosage: 100 MCG
     Route: 062
  8. EFFEXOR [Concomitant]
     Route: 048

REACTIONS (4)
  - ANKYLOSING SPONDYLITIS [None]
  - DRUG INEFFECTIVE [None]
  - JAW FRACTURE [None]
  - MUSCLE TIGHTNESS [None]
